FAERS Safety Report 16425461 (Version 1)
Quarter: 2019Q2

REPORT INFORMATION
  Report Type: Report from Study
  Country: US (occurrence: US)
  Receive Date: 20190613
  Receipt Date: 20190613
  Transmission Date: 20190711
  Serious: Yes (Hospitalization, Other)
  Sender: FDA-Public Use
  Company Number: US-BAYER-2019-111751

PATIENT
  Age: 55 Year
  Sex: Female

DRUGS (1)
  1. BETASERON [Suspect]
     Active Substance: INTERFERON BETA-1B
     Indication: MULTIPLE SCLEROSIS
     Dosage: 0.3 MG, QOD
     Route: 030
     Dates: start: 20170203

REACTIONS (9)
  - Hip fracture [None]
  - Influenza like illness [None]
  - Upper limb fracture [None]
  - Product dose omission [None]
  - Multiple sclerosis relapse [None]
  - Dehydration [None]
  - Injection site erythema [None]
  - Pancreatitis [None]
  - Injection site induration [None]

NARRATIVE: CASE EVENT DATE: 2017
